FAERS Safety Report 21735258 (Version 2)
Quarter: 2023Q1

REPORT INFORMATION
  Report Type: Report from Study
  Country: AR (occurrence: AR)
  Receive Date: 20221215
  Receipt Date: 20230109
  Transmission Date: 20230418
  Serious: Yes (Disabling, Other)
  Sender: FDA-Public Use
  Company Number: AR-002147023-NVSC2022AR288097

PATIENT
  Sex: Male

DRUGS (5)
  1. DIOVAN [Suspect]
     Active Substance: VALSARTAN
     Indication: Hypertension
     Dosage: 80 MG, QD
     Route: 048
     Dates: start: 201207, end: 201312
  2. DIOVAN [Suspect]
     Active Substance: VALSARTAN
     Dosage: 160 MG, QD
     Route: 048
     Dates: start: 201312
  3. FENOFIBRATE [Concomitant]
     Active Substance: FENOFIBRATE
     Indication: Hypercholesterolaemia
     Dosage: MICRONIZED (STARTED 10 YEARS AGO)
     Route: 065
  4. DIETARY SUPPLEMENT\RESVERATROL [Concomitant]
     Active Substance: DIETARY SUPPLEMENT\RESVERATROL
     Indication: Premature ageing
     Dosage: (STARTED 10 YEARS AGO)
     Route: 065
  5. VITAMIN E [Concomitant]
     Active Substance: .ALPHA.-TOCOPHEROL
     Indication: Product used for unknown indication
     Dosage: (STARTED 10 YEARS AGO)
     Route: 065

REACTIONS (3)
  - Neuromyopathy [Not Recovered/Not Resolved]
  - Type 2 diabetes mellitus [Unknown]
  - Blood pressure abnormal [Unknown]
